FAERS Safety Report 17162354 (Version 1)
Quarter: 2019Q4

REPORT INFORMATION
  Report Type: Spontaneous
  Country: US (occurrence: US)
  Receive Date: 20191216
  Receipt Date: 20191216
  Transmission Date: 20200122
  Serious: Yes (Life-Threatening, Hospitalization, Disabling, Other)
  Sender: FDA-Public Use
  Company Number: None

PATIENT
  Age: 80 Year
  Sex: Female

DRUGS (13)
  1. DILTIAZEM 120MG TABLET [Concomitant]
     Dates: start: 20190204
  2. FUROSEMIDE 40 MG TABLET [Concomitant]
     Dates: start: 20190211
  3. VITAMIN D 50000 UNITS CAPSULE [Concomitant]
     Dates: start: 20190327
  4. METFORMIN [Concomitant]
     Active Substance: METFORMIN HYDROCHLORIDE
     Dates: start: 20190622
  5. DIGOX 0.125 MG TABLETS [Concomitant]
     Dates: start: 20190712
  6. GABAPENTIN 300MG CAPSULE [Concomitant]
     Active Substance: GABAPENTIN
     Dates: start: 20190808
  7. FEROSUL 325MG TABLETS [Concomitant]
     Dates: start: 20191112
  8. ROSUVASTATIN 10 MG TABLET [Concomitant]
     Dates: start: 20190413
  9. DIGOXIN 0.125 MG TABLET [Concomitant]
     Dates: start: 20190916
  10. SPIRONOLACT 25MG TABLET [Concomitant]
     Dates: start: 20190910
  11. LEVOTHYROXIN 88 MCG TABLET [Concomitant]
     Dates: start: 20190725
  12. SYNTHROPID 137MCG TABLET [Concomitant]
     Dates: start: 20181025
  13. ADCIRCA [Suspect]
     Active Substance: TADALAFIL
     Indication: PULMONARY HYPERTENSION
     Route: 048

REACTIONS (1)
  - Heart rate decreased [None]

NARRATIVE: CASE EVENT DATE: 20191106
